FAERS Safety Report 11468045 (Version 1)
Quarter: 2015Q3

REPORT INFORMATION
  Report Type: Spontaneous
  Country: US (occurrence: US)
  Receive Date: 20150908
  Receipt Date: 20150908
  Transmission Date: 20151125
  Serious: Yes (Hospitalization)
  Sender: FDA-Public Use
  Company Number: US-PFIZER INC-2015286025

PATIENT
  Sex: Female

DRUGS (5)
  1. TOPAMAX [Suspect]
     Active Substance: TOPIRAMATE
     Dosage: 400 MG, UNK
  2. DILANTIN [Suspect]
     Active Substance: PHENYTOIN
     Dosage: 700 MG, UNK
  3. KEPPRA [Suspect]
     Active Substance: LEVETIRACETAM
     Dosage: 1000 MG, UNK
  4. KLONOPIN [Suspect]
     Active Substance: CLONAZEPAM
     Dosage: 2 MG, UNK
  5. VIMPAT [Suspect]
     Active Substance: LACOSAMIDE
     Dosage: UNK

REACTIONS (3)
  - Arrhythmia [Unknown]
  - Partial seizures [Unknown]
  - Dysarthria [Unknown]
